FAERS Safety Report 10286825 (Version 1)
Quarter: 2014Q3

REPORT INFORMATION
  Report Type: Spontaneous
  Country: FR (occurrence: None)
  Receive Date: 20140707
  Receipt Date: 20140707
  Transmission Date: 20150326
  Serious: Yes (Other)
  Sender: FDA-Public Use
  Company Number: 2014VER00058

PATIENT
  Age: 14 Year
  Sex: Female

DRUGS (1)
  1. ISOTRETINOIN (ISOTRETINOIN) UNKNOWN [Suspect]
     Active Substance: ISOTRETINOIN
     Indication: ACNE

REACTIONS (8)
  - Panic attack [None]
  - Hyperhidrosis [None]
  - Paraesthesia [None]
  - Vomiting [None]
  - Vertigo [None]
  - Cough [None]
  - Chills [None]
  - Palpitations [None]
